FAERS Safety Report 9432785 (Version 3)
Quarter: 2013Q4

REPORT INFORMATION
  Report Type: Report from Study
  Country: CA (occurrence: CA)
  Receive Date: 20130731
  Receipt Date: 20131203
  Transmission Date: 20140711
  Serious: Yes (Hospitalization, Other)
  Sender: FDA-Public Use
  Company Number: CA-ELI_LILLY_AND_COMPANY-CA201307007484

PATIENT
  Age: 82 Year
  Sex: Female

DRUGS (10)
  1. TERIPARATIDE [Suspect]
     Indication: OSTEOPOROSIS
     Dosage: 20 UG, QD
     Route: 058
     Dates: start: 20120413, end: 201307
  2. ATACAND [Concomitant]
  3. TRINIPATCH [Concomitant]
  4. RIVASA [Concomitant]
  5. AMLODIPINE [Concomitant]
  6. STRESSTAB                          /02364401/ [Concomitant]
  7. MONOCOR [Concomitant]
  8. CALCIUM [Concomitant]
  9. VITAMIN D [Concomitant]
  10. PRIMIDONE [Concomitant]

REACTIONS (1)
  - Renal failure [Not Recovered/Not Resolved]
